FAERS Safety Report 12464339 (Version 1)
Quarter: 2016Q2

REPORT INFORMATION
  Report Type: Spontaneous
  Country: JP (occurrence: JP)
  Receive Date: 20160614
  Receipt Date: 20160614
  Transmission Date: 20160815
  Serious: Yes (Hospitalization, Other)
  Sender: FDA-Public Use
  Company Number: JP-PFIZER INC-2016298267

PATIENT
  Age: 8 Decade
  Sex: Male

DRUGS (3)
  1. PRECEDEX [Suspect]
     Active Substance: DEXMEDETOMIDINE HYDROCHLORIDE
     Dosage: UNK
     Route: 042
  2. MIDAZOLAM [Concomitant]
     Active Substance: MIDAZOLAM\MIDAZOLAM HYDROCHLORIDE
     Dosage: UNK
     Route: 042
  3. PETHIDINE [Concomitant]
     Active Substance: MEPERIDINE
     Dosage: UNK
     Route: 042

REACTIONS (4)
  - Lactic acidosis [Unknown]
  - Cardio-respiratory arrest [Recovered/Resolved]
  - Bradycardia [Unknown]
  - Shock [Unknown]
